FAERS Safety Report 10148917 (Version 2)
Quarter: 2014Q2

REPORT INFORMATION
  Report Type: Report from Study
  Country: FR (occurrence: FR)
  Receive Date: 20140502
  Receipt Date: 20140502
  Transmission Date: 20141212
  Serious: Yes (Hospitalization, Other)
  Sender: FDA-Public Use
  Company Number: FR-ROCHE-1162568

PATIENT
  Age: 50 Year
  Sex: Female

DRUGS (9)
  1. RITUXIMAB [Suspect]
     Indication: RHEUMATOID ARTHRITIS
     Route: 065
     Dates: start: 20050701
  2. RITUXIMAB [Suspect]
     Route: 065
     Dates: start: 20050715
  3. RITUXIMAB [Suspect]
     Route: 065
     Dates: start: 20061219
  4. RITUXIMAB [Suspect]
     Route: 065
     Dates: start: 20071130
  5. RITUXIMAB [Suspect]
     Route: 065
     Dates: start: 20071214
  6. RITUXIMAB [Suspect]
     Route: 065
     Dates: start: 20080916
  7. RITUXIMAB [Suspect]
     Route: 065
     Dates: start: 20091029
  8. RITUXIMAB [Suspect]
     Route: 065
     Dates: start: 20091113
  9. ORENCIA [Concomitant]

REACTIONS (21)
  - Weight decreased [Recovered/Resolved]
  - Pyrexia [Recovered/Resolved]
  - Sinusitis [Recovered/Resolved]
  - Pancytopenia [Recovered/Resolved]
  - Decreased appetite [Recovered/Resolved]
  - Asthenia [Recovered/Resolved]
  - General physical health deterioration [Recovered/Resolved]
  - Infection [Unknown]
  - Aspartate aminotransferase increased [Unknown]
  - Papule [Recovered/Resolved]
  - Asthenia [Recovered/Resolved]
  - Gastrointestinal motility disorder [Recovered/Resolved]
  - Vertigo [Not Recovered/Not Resolved]
  - Headache [Recovered/Resolved]
  - Migraine [Recovered/Resolved]
  - Neutropenia [Unknown]
  - Hypogammaglobulinaemia [Not Recovered/Not Resolved]
  - Rhinitis [Recovered/Resolved]
  - Bronchitis [Recovered/Resolved]
  - Genital herpes zoster [Recovered/Resolved]
  - Rash pustular [Recovered/Resolved]
